FAERS Safety Report 10590797 (Version 4)
Quarter: 2014Q4

REPORT INFORMATION
  Report Type: Spontaneous
  Country: IT (occurrence: IT)
  Receive Date: 20141118
  Receipt Date: 20141209
  Transmission Date: 20150529
  Serious: Yes (Hospitalization, Other)
  Sender: FDA-Public Use
  Company Number: IT-PFIZER INC-2014307470

PATIENT
  Age: 58 Year
  Sex: Male
  Weight: 60 kg

DRUGS (3)
  1. ATORVASTATIN CALCIUM. [Suspect]
     Active Substance: ATORVASTATIN CALCIUM
     Indication: HYPERCHOLESTEROLAEMIA
     Dosage: 10 MG, DAILY
     Route: 048
     Dates: start: 20131001, end: 20141013
  2. AMIODARONE [Concomitant]
     Active Substance: AMIODARONE
     Indication: VENTRICULAR TACHYCARDIA
     Dosage: 200 MG, UNK
     Route: 048
     Dates: start: 20131017, end: 20141013
  3. FENOBARBITAL [Concomitant]
     Active Substance: PHENOBARBITAL
     Indication: POST-TRAUMATIC EPILEPSY
     Dosage: 100 MG, UNK
     Route: 048
     Dates: start: 19720101, end: 20141016

REACTIONS (8)
  - Ventricular arrhythmia [Recovering/Resolving]
  - Cardiovascular disorder [Unknown]
  - Feeling abnormal [Unknown]
  - Cardiac failure [Unknown]
  - Multi-organ failure [Unknown]
  - Rhabdomyolysis [Recovered/Resolved]
  - Fall [Unknown]
  - Hyperthyroidism [Unknown]

NARRATIVE: CASE EVENT DATE: 2013
